FAERS Safety Report 8315234-3 (Version None)
Quarter: 2012Q2

REPORT INFORMATION
  Report Type: 
  Country: None (occurrence: None)
  Receive Date: 20120426
  Receipt Date: 20111005
  Transmission Date: 20120825
  Serious: No
  Sender: FDA-Public Use
  Company Number: US-MYLANLABS-2011S1020966

PATIENT
  Age: 67 Year
  Sex: Female

DRUGS (1)
  1. DILTIAZEM HCL [Suspect]
     Indication: PALPITATIONS
     Route: 048
     Dates: start: 20101004

REACTIONS (3)
  - EMOTIONAL DISORDER [None]
  - PALPITATIONS [None]
  - DRUG INEFFECTIVE FOR UNAPPROVED INDICATION [None]
